FAERS Safety Report 6747275-1 (Version None)
Quarter: 2010Q2

REPORT INFORMATION
  Report Type: 
  Country: None (occurrence: None)
  Receive Date: 20100528
  Receipt Date: 20100525
  Transmission Date: 20101027
  Serious: Yes (Disabling)
  Sender: FDA-Public Use
  Company Number: A0847370A

PATIENT
  Age: 48 Year
  Sex: Female

DRUGS (2)
  1. ADVAIR DISKUS 100/50 [Suspect]
     Indication: DRUG USE FOR UNKNOWN INDICATION
     Dosage: 1PUFF TWICE PER DAY
     Route: 055
     Dates: start: 20100201
  2. NO CONCURRENT MEDICATION [Concomitant]

REACTIONS (3)
  - HEART RATE INCREASED [None]
  - MALAISE [None]
  - PRODUCT QUALITY ISSUE [None]
